FAERS Safety Report 26040373 (Version 2)
Quarter: 2025Q4

REPORT INFORMATION
  Report Type: Spontaneous
  Country: EU (occurrence: EU)
  Receive Date: 20251113
  Receipt Date: 20251127
  Transmission Date: 20260117
  Serious: Yes (Hospitalization, Other)
  Sender: AUROBINDO
  Company Number: EU-AFSSAPS-PV2025000835

PATIENT
  Age: 3 Day
  Sex: Female
  Weight: 3.4 kg

DRUGS (6)
  1. ATENOLOL [Suspect]
     Active Substance: ATENOLOL
     Indication: Arteriovenous malformation
     Dosage: 50 MILLIGRAM, ONCE A DAY
     Dates: end: 202507
  2. ATENOLOL [Suspect]
     Active Substance: ATENOLOL
     Dosage: 50 MILLIGRAM, UNK
     Dates: start: 202507, end: 20251009
  3. ATENOLOL [Suspect]
     Active Substance: ATENOLOL
     Dosage: 50 MILLIGRAM, ONCE A DAY
     Route: 065
     Dates: start: 20251010, end: 20251015
  4. ATENOLOL [Suspect]
     Active Substance: ATENOLOL
     Dosage: 50 MILLIGRAM, ONCE A DAY
     Route: 063
     Dates: start: 20251016, end: 20251016
  5. PRAZEPAM [Suspect]
     Active Substance: PRAZEPAM
     Indication: Anxiety
     Dosage: 20 MILLIGRAM, UNK
  6. PRAZEPAM [Suspect]
     Active Substance: PRAZEPAM
     Dosage: 20 MILLIGRAM, ONCE A DAY
     Route: 063
     Dates: start: 20251016, end: 20251019

REACTIONS (4)
  - Bradycardia neonatal [Recovered/Resolved]
  - Hypoglycaemia neonatal [Recovered/Resolved]
  - Neonatal hypoxia [Recovered/Resolved]
  - Methaemoglobinaemia [Recovered/Resolved]

NARRATIVE: CASE EVENT DATE: 20251019
